FAERS Safety Report 8828587 (Version 1)
Quarter: 2012Q4

REPORT INFORMATION
  Report Type: Report from Study
  Country: US (occurrence: US)
  Receive Date: 20121005
  Receipt Date: 20121005
  Transmission Date: 20130627
  Serious: Yes (Hospitalization)
  Sender: FDA-Public Use
  Company Number: US-ROCHE-1137556

PATIENT
  Age: 63 Year
  Sex: Female
  Weight: 48.98 kg

DRUGS (2)
  1. XELODA [Suspect]
     Indication: BREAST CANCER
     Route: 048
     Dates: start: 20120824
  2. IMODIUM [Concomitant]

REACTIONS (1)
  - Presyncope [Unknown]
